FAERS Safety Report 21958752 (Version 4)
Quarter: 2024Q1

REPORT INFORMATION
  Report Type: Spontaneous
  Country: US (occurrence: US)
  Receive Date: 20230206
  Receipt Date: 20240321
  Transmission Date: 20240410
  Serious: Yes (Other)
  Sender: FDA-Public Use
  Company Number: US-PFIZER INC-PV202300021308

PATIENT
  Age: 60 Year
  Sex: Female
  Weight: 78 kg

DRUGS (6)
  1. IBRANCE [Suspect]
     Active Substance: PALBOCICLIB
     Indication: Breast cancer metastatic
     Dosage: TAKE 1 TABLET DAILY FOR 21 DAYS ON, THEN 7 DAYS OFF
     Route: 048
     Dates: start: 20180608
  2. IBRANCE [Suspect]
     Active Substance: PALBOCICLIB
     Indication: Malignant nipple neoplasm female
  3. IBRANCE [Suspect]
     Active Substance: PALBOCICLIB
     Indication: Bone cancer
  4. IBRANCE [Suspect]
     Active Substance: PALBOCICLIB
     Indication: Invasive lobular breast carcinoma
  5. LETROZOLE [Concomitant]
     Active Substance: LETROZOLE
     Indication: Invasive lobular breast carcinoma
     Dosage: 2.5 MG, DAILY
  6. XGEVA [Concomitant]
     Active Substance: DENOSUMAB
     Indication: Invasive lobular breast carcinoma

REACTIONS (14)
  - Neutropenia [Unknown]
  - White blood cell count decreased [Unknown]
  - Full blood count decreased [Unknown]
  - Herpes zoster [Unknown]
  - Nasopharyngitis [Unknown]
  - Red blood cell count decreased [Unknown]
  - Haematocrit decreased [Unknown]
  - Mean cell haemoglobin increased [Unknown]
  - Red cell distribution width increased [Unknown]
  - Mean platelet volume decreased [Unknown]
  - Lymphocyte percentage increased [Unknown]
  - Monocyte percentage increased [Unknown]
  - Basophil percentage increased [Unknown]
  - Lymphocyte count decreased [Unknown]

NARRATIVE: CASE EVENT DATE: 20240311
